FAERS Safety Report 9884499 (Version 1)
Quarter: 2014Q1

REPORT INFORMATION
  Report Type: Spontaneous
  Country: US (occurrence: US)
  Receive Date: 20140210
  Receipt Date: 20140210
  Transmission Date: 20141002
  Serious: No
  Sender: FDA-Public Use
  Company Number: US-ALLERGAN-1319453US

PATIENT
  Sex: Male

DRUGS (1)
  1. BOTOX COSMETIC [Suspect]
     Indication: SKIN WRINKLING
     Dosage: 11 UNITS, SINGLE
     Route: 030
     Dates: start: 20131210, end: 20131210

REACTIONS (8)
  - Sinus headache [Unknown]
  - Sinus disorder [Unknown]
  - Oropharyngeal discomfort [Unknown]
  - Oropharyngeal discomfort [Unknown]
  - Feeling drunk [Unknown]
  - Dizziness [Unknown]
  - Wrong technique in drug usage process [Unknown]
  - Dysarthria [Unknown]
